FAERS Safety Report 8017962-6 (Version None)
Quarter: 2012Q1

REPORT INFORMATION
  Report Type: 
  Country: None (occurrence: None)
  Receive Date: 20120103
  Receipt Date: 20111227
  Transmission Date: 20120608
  Serious: No
  Sender: FDA-Public Use
  Company Number: US-JNJFOC-20111211327

PATIENT
  Sex: Male

DRUGS (9)
  1. DURAGESIC-100 [Suspect]
     Indication: BACK PAIN
     Route: 062
     Dates: start: 20111219
  2. CLONIDINE [Concomitant]
     Indication: HYPERTENSION
     Route: 048
  3. PROZAC [Concomitant]
     Indication: ANXIETY
     Dosage: 10/12.5 MG
     Route: 048
     Dates: start: 20100101
  4. AMITRIPTYLINE HCL [Concomitant]
     Indication: PAIN
     Route: 048
     Dates: start: 20111001
  5. TIZANIDINE HCL [Concomitant]
     Indication: PAIN
     Route: 048
     Dates: start: 20111119
  6. TOPIRAMATE [Concomitant]
     Indication: PAIN
     Route: 048
     Dates: start: 20111119
  7. LISINOPRIL AND HYDROCHLOROTHIAZIDE [Concomitant]
     Indication: HYPERTENSION
     Dosage: 10/12.5 MG
     Route: 048
  8. PROZAC [Concomitant]
     Indication: DEPRESSION
     Dosage: 10/12.5 MG
     Route: 048
     Dates: start: 20100101
  9. TOPIRAMATE [Concomitant]
     Indication: WEIGHT DECREASED
     Route: 048
     Dates: start: 20111119

REACTIONS (2)
  - PRODUCT ADHESION ISSUE [None]
  - WRONG TECHNIQUE IN DRUG USAGE PROCESS [None]
